FAERS Safety Report 4284012-7 (Version None)
Quarter: 2004Q1

REPORT INFORMATION
  Report Type: 
  Country: None (occurrence: None)
  Receive Date: 20040202
  Receipt Date: 20040116
  Transmission Date: 20041129
  Serious: Yes (Other)
  Sender: FDA-Public Use
  Company Number: CHPA2004US00487

PATIENT
  Age: 37 Year
  Sex: Male
  Weight: 108.8 kg

DRUGS (2)
  1. THERAFLU MS SEVERE COLD AND CONGESTION NIGHT TIME NATURAL LEMON (NCH) [Suspect]
     Indication: NASOPHARYNGITIS
     Dosage: 1 PACKET BID; ORAL
     Dates: start: 20030114, end: 20040114
  2. DEPICAL [Concomitant]

REACTIONS (1)
  - GRAND MAL CONVULSION [None]
